FAERS Safety Report 16474783 (Version 1)
Quarter: 2019Q2

REPORT INFORMATION
  Report Type: Spontaneous
  Country: DE (occurrence: DE)
  Receive Date: 20190625
  Receipt Date: 20190625
  Transmission Date: 20190711
  Serious: Yes (Death)
  Sender: FDA-Public Use
  Company Number: DE-SA-2019SA169212

PATIENT
  Age: 70 Year
  Sex: Male
  Weight: 65 kg

DRUGS (1)
  1. CABAZITAXEL [Suspect]
     Active Substance: CABAZITAXEL
     Indication: PROSTATE CANCER METASTATIC
     Dosage: DAILY DOSE: 20 MG/M2 MILLIGRAM(S)/SQ. METER EVERY TOTAL
     Route: 042
     Dates: start: 20190523

REACTIONS (4)
  - Pneumonitis [Fatal]
  - Cough [Fatal]
  - Dyspnoea [Fatal]
  - Alveolitis [Fatal]

NARRATIVE: CASE EVENT DATE: 20190524
